FAERS Safety Report 21351668 (Version 1)
Quarter: 2022Q3

REPORT INFORMATION
  Report Type: Spontaneous
  Country: US (occurrence: US)
  Receive Date: 20220919
  Receipt Date: 20220919
  Transmission Date: 20221027
  Serious: Yes (Hospitalization, Other)
  Sender: FDA-Public Use
  Company Number: US-PAIPHARMA-2022-US-022217

PATIENT
  Age: 40 Year
  Sex: Male

DRUGS (4)
  1. CYCLOSPORINE [Suspect]
     Active Substance: CYCLOSPORINE
     Indication: Immunosuppressant drug therapy
  2. EVEROLIMUS [Suspect]
     Active Substance: EVEROLIMUS
     Indication: Immunosuppressant drug therapy
  3. DAPSONE [Concomitant]
     Active Substance: DAPSONE
  4. POSACONAZOLE [Concomitant]
     Active Substance: POSACONAZOLE

REACTIONS (1)
  - Cerebrovascular accident [Unknown]
